FAERS Safety Report 24869528 (Version 1)
Quarter: 2025Q1

REPORT INFORMATION
  Report Type: Report from Study
  Country: JP (occurrence: JP)
  Receive Date: 20250121
  Receipt Date: 20250121
  Transmission Date: 20250409
  Serious: Yes (Other)
  Sender: PFIZER
  Company Number: JP-PFIZER INC-202400334743

PATIENT
  Age: 67 Year
  Sex: Female

DRUGS (1)
  1. METRONIDAZOLE [Suspect]
     Active Substance: METRONIDAZOLE
     Indication: Enterocolitis
     Dosage: 500 MG, 3X/DAY

REACTIONS (1)
  - Altered state of consciousness [Recovered/Resolved]
